FAERS Safety Report 8438770-8 (Version None)
Quarter: 2012Q2

REPORT INFORMATION
  Report Type: 
  Country: None (occurrence: None)
  Receive Date: 20120608
  Receipt Date: 20120404
  Transmission Date: 20120825
  Serious: Yes (Hospitalization, Other)
  Sender: FDA-Public Use
  Company Number: 2010AL003485

PATIENT
  Sex: Female
  Weight: 82.5547 kg

DRUGS (57)
  1. ALPRAZOLAM [Concomitant]
  2. DEPO-MEDROL [Concomitant]
  3. HALOG [Concomitant]
  4. HYDROCODONE BITARTRATE + ACETAMINOPHEN [Concomitant]
  5. LEVSINEX [Concomitant]
  6. LOVAZA [Concomitant]
  7. NEXIUM [Concomitant]
  8. PROPULSID [Concomitant]
  9. PSEUDOEPHEDRINE/GUAIFENESIN [Concomitant]
  10. WELCHOL [Concomitant]
  11. ASPIRIN [Concomitant]
  12. BEXTRA [Concomitant]
  13. FLAGYL [Concomitant]
  14. MACROBID [Concomitant]
  15. OXYCONTIN [Concomitant]
  16. PREMPRO [Concomitant]
  17. VIOXX [Concomitant]
  18. ZETIA [Concomitant]
  19. CELEBREX [Concomitant]
  20. ELAVIL [Concomitant]
  21. PAMELOR [Concomitant]
  22. PROCHLORPERAZINE [Concomitant]
  23. SULFAMETHOXAZOLE AND TRIMETHOPRIM [Concomitant]
  24. ASPIRIN [Concomitant]
  25. RANITIDINE [Concomitant]
  26. TERAZOL 3 [Concomitant]
  27. ZITHROMAX [Concomitant]
  28. ACIPHEX [Concomitant]
  29. CORTISONE INJECTIONS [Concomitant]
  30. LEVAQUIN [Concomitant]
  31. LEXAPRO [Concomitant]
  32. LYRICA [Concomitant]
  33. MAGIC MOUTHWASH [Concomitant]
  34. METHYLPREDNISOLONE [Concomitant]
  35. NYSTATIN-TRIAMCINOLONE ACETONIDE [Concomitant]
  36. PREMARIN [Concomitant]
  37. SEMPREX-D [Concomitant]
  38. ZOLOFT [Concomitant]
  39. METOCLOPRAMIDE [Suspect]
     Indication: IMPAIRED GASTRIC EMPTYING
     Dosage: 10 MG, BID, PO
     Route: 048
     Dates: start: 20020116, end: 20080501
  40. AMITRIPTYLINE HCL [Concomitant]
  41. ANALPRAM-HC CREAM [Concomitant]
  42. ARTANE [Concomitant]
  43. BELLADONNA [Concomitant]
  44. CIPROFLOXACIN HYDROCHLORIDE [Concomitant]
  45. DIFLUCAN [Concomitant]
  46. BACTROBAN [Concomitant]
  47. EFFEXOR [Concomitant]
  48. LIDODERM [Concomitant]
  49. NYSTATIN [Concomitant]
  50. OMACOR [Concomitant]
  51. PREFEST [Concomitant]
  52. PRILOSEC [Concomitant]
  53. VALIUM [Concomitant]
  54. VITAMIN B COMPLEX CAP [Concomitant]
  55. BENTYL [Concomitant]
  56. LIDOCAINE [Concomitant]
  57. XANAX [Concomitant]

REACTIONS (50)
  - ECONOMIC PROBLEM [None]
  - PAIN IN EXTREMITY [None]
  - GASTRITIS [None]
  - TRIGEMINAL NEURALGIA [None]
  - DYSAESTHESIA [None]
  - PARAESTHESIA [None]
  - DRY MOUTH [None]
  - PALPITATIONS [None]
  - URINE OSMOLARITY INCREASED [None]
  - PARESIS [None]
  - CEREBRAL ATROPHY [None]
  - CYST [None]
  - SYNOVITIS [None]
  - STOMATITIS [None]
  - MUCOSAL INFLAMMATION [None]
  - PSYCHOMOTOR HYPERACTIVITY [None]
  - GASTRIC POLYPS [None]
  - OSTEOARTHRITIS [None]
  - TEMPOROMANDIBULAR JOINT SYNDROME [None]
  - MOBILITY DECREASED [None]
  - APHTHOUS STOMATITIS [None]
  - ARTHRALGIA [None]
  - PRURITUS [None]
  - EMOTIONAL DISORDER [None]
  - ABDOMINAL DISTENSION [None]
  - IMPAIRED GASTRIC EMPTYING [None]
  - ASTHENIA [None]
  - MIGRAINE [None]
  - GASTROOESOPHAGEAL REFLUX DISEASE [None]
  - HEPATIC FIBROSIS [None]
  - HYPERLIPIDAEMIA [None]
  - DERMATITIS [None]
  - GLOSSODYNIA [None]
  - TARDIVE DYSKINESIA [None]
  - HEPATIC ENZYME INCREASED [None]
  - OESOPHAGITIS [None]
  - TIC [None]
  - HEPATIC STEATOSIS [None]
  - OROPHARYNGEAL PAIN [None]
  - EAR PAIN [None]
  - DYSTONIA [None]
  - ANXIETY [None]
  - ELECTROCARDIOGRAM ABNORMAL [None]
  - URINARY TRACT INFECTION [None]
  - FACIAL PAIN [None]
  - THROAT IRRITATION [None]
  - NAUSEA [None]
  - NON-ALCOHOLIC STEATOHEPATITIS [None]
  - FOLLICULITIS [None]
  - EAR DISCOMFORT [None]
